FAERS Safety Report 4476800-9 (Version None)
Quarter: 2004Q4

REPORT INFORMATION
  Report Type: 
  Country: None (occurrence: None)
  Receive Date: 20041013
  Receipt Date: 20041001
  Transmission Date: 20050328
  Serious: Yes (Death)
  Sender: FDA-Public Use
  Company Number: HQWYE563606OCT04

PATIENT
  Age: 3 Year
  Sex: Female

DRUGS (2)
  1. CHILDREN'S ADVIL [Suspect]
     Dosage: ORAL
     Route: 048
  2. CHLORPHENIRAMINE/HYDROCODONE (CHLORPHENIRAMINE/HYDROCODONE, ) [Suspect]
     Dosage: ORAL
     Route: 048

REACTIONS (12)
  - ACCIDENTAL EXPOSURE [None]
  - BLOOD BICARBONATE DECREASED [None]
  - BLOOD PH DECREASED [None]
  - BRAIN DEATH [None]
  - BRAIN HERNIATION [None]
  - BRAIN STEM INFARCTION [None]
  - CEREBRAL INFARCTION [None]
  - COMA [None]
  - CYANOSIS [None]
  - HEART RATE INCREASED [None]
  - OVERDOSE [None]
  - THERAPY NON-RESPONDER [None]
